FAERS Safety Report 8021442-1 (Version None)
Quarter: 2012Q1

REPORT INFORMATION
  Report Type: 
  Country: None (occurrence: None)
  Receive Date: 20120104
  Receipt Date: 20111226
  Transmission Date: 20120608
  Serious: Yes (Hospitalization)
  Sender: FDA-Public Use
  Company Number: CA-JNJFOC-20120100183

PATIENT
  Sex: Female
  Weight: 52.8 kg

DRUGS (1)
  1. REMICADE [Suspect]
     Indication: CROHN'S DISEASE
     Dosage: INFLIXIMAB STARTED PRIOR TO 2008
     Route: 042

REACTIONS (2)
  - FALL [None]
  - PELVIC FRACTURE [None]
